FAERS Safety Report 10481978 (Version 2)
Quarter: 2014Q4

REPORT INFORMATION
  Report Type: Spontaneous
  Country: US (occurrence: US)
  Receive Date: 20140929
  Receipt Date: 20141111
  Transmission Date: 20150528
  Serious: No
  Sender: FDA-Public Use
  Company Number: US-PFIZER INC-2014267754

PATIENT
  Sex: Female

DRUGS (1)
  1. CELEBREX [Suspect]
     Active Substance: CELECOXIB
     Indication: PAIN
     Dosage: 200 MG, 1X/DAY (ONCE A DAY FOR 4 DAYS)

REACTIONS (5)
  - Diarrhoea [Recovered/Resolved]
  - Pain [Recovered/Resolved]
  - Liver disorder [Unknown]
  - Drug intolerance [Unknown]
  - Muscle spasms [Recovered/Resolved]
